FAERS Safety Report 25592205 (Version 1)
Quarter: 2025Q3

REPORT INFORMATION
  Report Type: Report from Study
  Country: PH (occurrence: PH)
  Receive Date: 20250722
  Receipt Date: 20250722
  Transmission Date: 20251020
  Serious: Yes (Death, Other)
  Sender: ALEXION PHARMACEUTICALS
  Company Number: PH-AstraZeneca-CH-00912575A

PATIENT
  Age: 55 Year
  Sex: Female

DRUGS (1)
  1. TAGRISSO [Suspect]
     Active Substance: OSIMERTINIB
     Indication: Lung neoplasm malignant
     Dates: start: 20250620, end: 20250709

REACTIONS (3)
  - Pneumonia [Fatal]
  - Hallucination [Unknown]
  - Nail disorder [Unknown]

NARRATIVE: CASE EVENT DATE: 20250709
